FAERS Safety Report 8543218-9 (Version None)
Quarter: 2012Q3

REPORT INFORMATION
  Report Type: 
  Country: None (occurrence: None)
  Receive Date: 20120716
  Receipt Date: 20120228
  Transmission Date: 20120928
  Serious: No
  Sender: FDA-Public Use
  Company Number: 2012BL000602

PATIENT
  Age: 62 Year
  Sex: Female

DRUGS (2)
  1. KENALOG (TRIAMCINOLONE ACETONIDE) (TRIAMCINOLONE ACETONIDE) [Concomitant]
  2. LATANOPROST [Suspect]
     Indication: GLAUCOMA
     Dosage: (1 GTT, 1 IN 1 D), OPHTHALMIC
     Route: 047
     Dates: start: 20111101, end: 20120101

REACTIONS (4)
  - INSTILLATION SITE ERYTHEMA [None]
  - INTRAOCULAR PRESSURE INCREASED [None]
  - INSTILLATION SITE IRRITATION [None]
  - PRODUCT SUBSTITUTION ISSUE [None]
